FAERS Safety Report 9836590 (Version 1)
Quarter: 2014Q1

REPORT INFORMATION
  Report Type: Spontaneous
  Country: US (occurrence: None)
  Receive Date: 20140116
  Receipt Date: 20140116
  Transmission Date: 20141002
  Serious: Yes (Hospitalization)
  Sender: FDA-Public Use
  Company Number: None

PATIENT
  Age: 46 Year
  Sex: Female
  Weight: 98.1 kg

DRUGS (5)
  1. IXEMPRA [Suspect]
     Indication: BREAST CANCER
     Route: 042
     Dates: start: 20131231
  2. ERBITUX (CETUXIMAB) [Concomitant]
     Indication: BREAST CANCER
     Route: 042
     Dates: start: 20131231
  3. VICODIN [Concomitant]
  4. CLINDAMYCIN [Concomitant]
  5. DOXYCYCLINE [Concomitant]

REACTIONS (4)
  - Pneumonia viral [None]
  - Pyrexia [None]
  - Neutropenia [None]
  - Productive cough [None]
